FAERS Safety Report 5287622-3 (Version None)
Quarter: 2007Q1

REPORT INFORMATION
  Report Type: 
  Country: None (occurrence: None)
  Receive Date: 20070108
  Receipt Date: 20060718
  Transmission Date: 20070707
  Serious: Yes (Other)
  Sender: FDA-Public Use
  Company Number: WAES 0607USA05295

PATIENT
  Age: 45 Year
  Sex: Male
  Weight: 95.2554 kg

DRUGS (8)
  1. PEPCID IV PRESERVATIVE FREE [Suspect]
     Indication: ABDOMINAL PAIN UPPER
     Dosage: 1 DOSE/INJ
     Route: 042
     Dates: start: 20060717, end: 20060717
  2. PEPCID [Suspect]
     Indication: ABDOMINAL PAIN UPPER
     Dosage: 20 MG/DAILY/PO
     Route: 048
     Dates: start: 20060717, end: 20060717
  3. IBUPROFEN [Suspect]
     Indication: BACK PAIN
     Dates: start: 20060717
  4. ANALGESIC OR ANESTHETIC (UNSPECIFIED) [Suspect]
     Indication: PAIN
     Dosage: 1 DOSE
     Dates: start: 20060717, end: 20060717
  5. ROBAXIN [Suspect]
     Indication: BACK PAIN
     Dates: start: 20060717
  6. OXYCOCET [Suspect]
     Indication: BACK PAIN
     Dates: start: 20060717
  7. ATIVAN [Concomitant]
  8. EFFEXOR [Concomitant]

REACTIONS (3)
  - ABDOMINAL PAIN UPPER [None]
  - NAUSEA [None]
  - VOMITING [None]
